FAERS Safety Report 9507073 (Version 1)
Quarter: 2013Q1

REPORT INFORMATION
  Report Type: Spontaneous
  Country: US (occurrence: None)
  Receive Date: 20130305
  Receipt Date: 20130305
  Transmission Date: 20140127
  Serious: Yes (Hospitalization, Other)
  Sender: FDA-Public Use
  Company Number: 163-21880-12050657

PATIENT
  Age: 77 Year
  Sex: Male
  Weight: 90.72 kg

DRUGS (18)
  1. REVLIMID [Suspect]
     Indication: PLASMA CELL MYELOMA
     Dosage: 5 MG, 21/7,  PO
     Route: 048
     Dates: start: 20110528
  2. NEXIUM [Concomitant]
  3. CARVEDILOL (CARVEDILOL) [Concomitant]
  4. TRICOR (FENOFIBRATE) [Concomitant]
  5. AVODART (DUTASTERUDE) [Concomitant]
  6. FEOSOL (FERROUS FULFATE) [Concomitant]
  7. OSTEO BI-FLEX (OSTEO BI-FLEX) [Concomitant]
  8. FISH OIL (FISH OIL) [Concomitant]
  9. ASA (ACETYLSALICYLIC ACID) [Concomitant]
  10. ROSUVASTATIN (ROSUVASTATIN) [Concomitant]
  11. MEDROL (METHYLPREDNISOLONE) [Concomitant]
  12. IMMODIUM (LOPERAMIDE) [Concomitant]
  13. LOMOTIL (LOMOTIL) [Concomitant]
  14. NYSTATIN (NYSTATIN) (SUSPENSION) [Concomitant]
  15. NORVASC (AMLODIPINE BESILATE) [Concomitant]
  16. LEVAQUIN (LEOVFLOXACIN) [Concomitant]
  17. LEVAQUIN (LEVOFLOXACIN) [Concomitant]
  18. LISINOPRIL (LISINOPRIL) [Concomitant]

REACTIONS (2)
  - Pelvic fracture [None]
  - Anaemia [None]
